FAERS Safety Report 25653394 (Version 1)
Quarter: 2025Q3

REPORT INFORMATION
  Report Type: Spontaneous
  Country: US (occurrence: US)
  Receive Date: 20250807
  Receipt Date: 20250807
  Transmission Date: 20251020
  Serious: Yes (Other)
  Sender: ALEMBIC
  Company Number: US-ALEMBIC PHARMACUETICALS LIMITED-2025SCAL000977

PATIENT

DRUGS (2)
  1. LITHIUM CARBONATE [Suspect]
     Active Substance: LITHIUM CARBONATE
     Indication: Bipolar I disorder
     Route: 065
  2. LITHIUM CARBONATE [Suspect]
     Active Substance: LITHIUM CARBONATE
     Route: 065

REACTIONS (5)
  - Psychotic disorder [Recovering/Resolving]
  - Mania [Recovering/Resolving]
  - Mood altered [Recovering/Resolving]
  - Antipsychotic drug level increased [Unknown]
  - Toxicity to various agents [Recovering/Resolving]
